FAERS Safety Report 11097615 (Version 1)
Quarter: 2015Q2

REPORT INFORMATION
  Report Type: Spontaneous
  Country: GB (occurrence: GB)
  Receive Date: 20150507
  Receipt Date: 20150507
  Transmission Date: 20150821
  Serious: Yes (Other)
  Sender: FDA-Public Use
  Company Number: GB-TEVA-560339ACC

PATIENT
  Age: 8 Year
  Sex: Male
  Weight: 44 kg

DRUGS (9)
  1. MOVICOL [Concomitant]
     Active Substance: POLYETHYLENE GLYCOL 3350\POTASSIUM CHLORIDE\SODIUM BICARBONATE\SODIUM CHLORIDE
     Dosage: 3 SACHETS = 1DF TWICE DAILY
     Dates: start: 20140905
  2. PIZOTIFEN [Concomitant]
     Active Substance: PIZOTYLINE
     Dosage: 1 DOSAGE FORMS DAILY;
     Dates: start: 20150422
  3. DICLOFENAC SODIUM. [Suspect]
     Active Substance: DICLOFENAC SODIUM
     Indication: PRODUCT USED FOR UNKNOWN INDICATION
     Route: 065
     Dates: start: 20150422
  4. ANUSOL [Concomitant]
     Dosage: APPLY AS NEEDED
     Dates: start: 20150326
  5. AMOXICILLIN. [Concomitant]
     Active Substance: AMOXICILLIN
     Dosage: 15 ML DAILY;
     Dates: start: 20150311, end: 20150318
  6. SODIUM PICOSULFATE [Concomitant]
     Active Substance: SODIUM PICOSULFATE
     Dosage: 20ML CYCLICAL
     Dates: start: 20140905
  7. NUTRITIONAL SUPPLEMENT [Concomitant]
     Active Substance: DIETARY SUPPLEMENT
     Dosage: 2 SCOOPS = 1DF DAILY AS PER HOSPITAL
     Dates: start: 20131105
  8. CHLORPHENAMINE [Concomitant]
     Active Substance: CHLORPHENIRAMINE MALEATE
     Dosage: 5ML EVERY 4-6 HOURS
     Dates: start: 20150422
  9. SALBUTAMOL [Concomitant]
     Active Substance: ALBUTEROL
     Dosage: 2 DF AS REQUIRED
     Route: 055
     Dates: start: 20150311, end: 20150408

REACTIONS (1)
  - Wheezing [Recovering/Resolving]

NARRATIVE: CASE EVENT DATE: 20150422
